FAERS Safety Report 8614491-3 (Version None)
Quarter: 2012Q3

REPORT INFORMATION
  Report Type: 
  Country: None (occurrence: None)
  Receive Date: 20120823
  Receipt Date: 20120817
  Transmission Date: 20120928
  Serious: Yes (Congenital Anomaly, Other)
  Sender: FDA-Public Use
  Company Number: PHHY2012DE057614

PATIENT
  Sex: Male

DRUGS (4)
  1. NEBIVOLOL HCL [Concomitant]
     Dosage: MATERNAL DOSE, 1 DF (5 MG) QD
     Route: 064
  2. INSULIN [Concomitant]
     Route: 064
  3. VALSARTAN/HYDROCHLOROTHIAZIDE [Suspect]
     Indication: RENAL HYPERTENSION
     Dosage: MATERNAL DOSE 1 DF (80 MG VALSAR AND 12.5 MG HYDRO), QD
     Route: 064
  4. METHYLDOPA [Concomitant]
     Dosage: MATERNAL DOSE (1 DF, TID)
     Route: 064

REACTIONS (11)
  - FOETAL EXPOSURE DURING PREGNANCY [None]
  - BLOOD UREA INCREASED [None]
  - GLOMERULAR FILTRATION RATE DECREASED [None]
  - KIDNEY ENLARGEMENT [None]
  - LOW BIRTH WEIGHT BABY [None]
  - RENAL HYPERTENSION [None]
  - PROTEINURIA [None]
  - NEPHROGENIC ANAEMIA [None]
  - BLOOD CREATININE INCREASED [None]
  - PREMATURE BABY [None]
  - RENAL FAILURE NEONATAL [None]
